FAERS Safety Report 13329646 (Version 2)
Quarter: 2017Q2

REPORT INFORMATION
  Report Type: Spontaneous
  Country: US (occurrence: US)
  Receive Date: 20170313
  Receipt Date: 20170411
  Transmission Date: 20170830
  Serious: Yes (Other)
  Sender: FDA-Public Use
  Company Number: US-APOTEX-2017AP007663

PATIENT
  Sex: Female

DRUGS (1)
  1. FLUTICASONE PROPIONATE NASAL SPRAY USP [Suspect]
     Active Substance: FLUTICASONE PROPIONATE
     Indication: PRODUCT USED FOR UNKNOWN INDICATION
     Route: 045

REACTIONS (7)
  - Apparent death [Unknown]
  - Breath sounds abnormal [Unknown]
  - Pyrexia [Unknown]
  - Headache [Unknown]
  - Hypersomnia [Unknown]
  - Product quality issue [Unknown]
  - Product odour abnormal [Unknown]
